FAERS Safety Report 5577113-4 (Version None)
Quarter: 2007Q4

REPORT INFORMATION
  Report Type: 
  Country: None (occurrence: None)
  Receive Date: 20071228
  Receipt Date: 20071217
  Transmission Date: 20080405
  Serious: Yes (Life-Threatening)
  Sender: FDA-Public Use
  Company Number: GB-PFIZER INC-2007073173

PATIENT
  Age: 39 Year
  Sex: Male

DRUGS (4)
  1. AMLODIPINE [Suspect]
  2. DOXAZOSIN [Suspect]
  3. ACETYLSALICYLIC ACID SRT [Suspect]
  4. METFORMIN HCL [Suspect]

REACTIONS (2)
  - HYPOTENSION [None]
  - OVERDOSE [None]
